FAERS Safety Report 5788442-3 (Version None)
Quarter: 2008Q2

REPORT INFORMATION
  Report Type: 
  Country: None (occurrence: None)
  Receive Date: 20080623
  Receipt Date: 20080609
  Transmission Date: 20081010
  Serious: Yes (Hospitalization)
  Sender: FDA-Public Use
  Company Number: SPV1-2008-01284

PATIENT
  Age: 79 Year
  Sex: Female
  Weight: 52.2 kg

DRUGS (8)
  1. PENTASA [Suspect]
     Indication: CROHN'S DISEASE
     Dosage: 250 MG, 3X/DAY; TID; ORAL; 500 MG, 3X/ DAY:TID, ORAL
     Route: 048
  2. SPIRIVA [Concomitant]
  3. VENTOLIN [Concomitant]
  4. ALBUTEROL [Concomitant]
  5. FLOVENT [Concomitant]
  6. OTHER RESPIRATORY MEDICATION [Concomitant]
  7. IPRATROPIUM MERCK (IPRATROPIUM BROMIDE) [Concomitant]
  8. ALBUTEROL SULFATE /00139501/ (SALBUTAMOL) [Concomitant]

REACTIONS (2)
  - INTESTINAL OBSTRUCTION [None]
  - SNEEZING [None]
